FAERS Safety Report 5933944-X (Version None)
Quarter: 2008Q4

REPORT INFORMATION
  Report Type: 
  Country: None (occurrence: None)
  Receive Date: 20081029
  Receipt Date: 20081020
  Transmission Date: 20090506
  Serious: Yes (Other)
  Sender: FDA-Public Use
  Company Number: GB-ABBOTT-08P-167-0483210-00

PATIENT
  Age: 26 Year
  Sex: Male

DRUGS (1)
  1. HUMIRA [Suspect]
     Indication: CROHN'S DISEASE
     Route: 058
     Dates: start: 20080904

REACTIONS (5)
  - CROHN'S DISEASE [None]
  - FAECAL INCONTINENCE [None]
  - MALAISE [None]
  - PALLOR [None]
  - WEIGHT DECREASED [None]
